FAERS Safety Report 5603645-6 (Version None)
Quarter: 2008Q1

REPORT INFORMATION
  Report Type: 
  Country: None (occurrence: None)
  Receive Date: 20080123
  Receipt Date: 20080101
  Transmission Date: 20080703
  Serious: Yes (Other)
  Sender: FDA-Public Use
  Company Number: 022606

PATIENT
  Sex: Female

DRUGS (1)
  1. PLAN B [Suspect]
     Indication: POST COITAL CONTRACEPTION
     Dosage: 1 TABLET, Q12HR, ORAL
     Route: 048
     Dates: start: 20080107

REACTIONS (4)
  - HEADACHE [None]
  - INFECTIOUS MONONUCLEOSIS [None]
  - JAUNDICE [None]
  - PHARYNGITIS STREPTOCOCCAL [None]
